FAERS Safety Report 15466641 (Version 1)
Quarter: 2018Q4

REPORT INFORMATION
  Report Type: Other
  Country: DE (occurrence: DE)
  Receive Date: 20181005
  Receipt Date: 20181005
  Transmission Date: 20190204
  Serious: No
  Sender: FDA-Public Use
  Company Number: DE-LUPIN PHARMACEUTICALS INC.-2018-05840

PATIENT
  Age: 81 Year
  Sex: Female
  Weight: 65 kg

DRUGS (18)
  1. ALENDRONSAEURE [Concomitant]
     Active Substance: ALENDRONATE SODIUM
     Indication: OSTEOPOROSIS
     Dosage: 70 MG, UNK WEEKLY (TAKING FOR MONTHS)
     Route: 048
  2. DEKRISTOL [Concomitant]
     Active Substance: CHOLECALCIFEROL
     Indication: PRODUCT USED FOR UNKNOWN INDICATION
     Dosage: 1000 IU, QD (TAKING FOR MONTHS)
     Route: 065
  3. MADOPAR [Concomitant]
     Active Substance: BENSERAZIDE HYDROCHLORIDE\LEVODOPA
     Indication: RESTLESS LEGS SYNDROME
     Dosage: UNK, (100 7 25 MG;TAKING FOR MONTHS)
     Route: 048
  4. BRIMICA GENUAIR [Concomitant]
     Active Substance: ACLIDINIUM BROMIDE\FORMOTEROL FUMARATE
     Indication: CHRONIC OBSTRUCTIVE PULMONARY DISEASE
     Dosage: UNK, TAKING FOR MONTHS
     Route: 065
  5. AMLODIPIN                          /00972401/ [Concomitant]
     Active Substance: AMLODIPINE BESYLATE
     Indication: PRODUCT USED FOR UNKNOWN INDICATION
     Dosage: 10 MG, QD (INGESTION FOR DAYS)
     Route: 065
  6. TELMISARTAN. [Concomitant]
     Active Substance: TELMISARTAN
     Indication: PRODUCT USED FOR UNKNOWN INDICATION
     Dosage: 40 MG, QD (TAKING FOR MONTHS)
     Route: 065
  7. MOCLOBEMID [Concomitant]
     Active Substance: MOCLOBEMIDE
     Indication: PRODUCT USED FOR UNKNOWN INDICATION
     Dosage: 75 MG, QD (INGESTION FOR DAYS)
     Route: 065
  8. TORASEMID [Suspect]
     Active Substance: TORSEMIDE
     Indication: OEDEMA DUE TO CARDIAC DISEASE
     Dosage: 10 MG, UNK (TAKING FOR MONTHS)
     Route: 048
     Dates: end: 20180622
  9. PRAMIPEXOL                         /01356401/ [Concomitant]
     Indication: PRODUCT USED FOR UNKNOWN INDICATION
     Dosage: 0.36 MG, QD (TAKING FOR MONTHS)
     Route: 065
  10. DULOXETINE. [Suspect]
     Active Substance: DULOXETINE
     Indication: DEPRESSION
     Dosage: 30 MG, UNK
     Route: 048
     Dates: end: 20180622
  11. OMEPRAZOL                          /00661201/ [Concomitant]
     Active Substance: OMEPRAZOLE
     Indication: DYSPEPSIA
     Dosage: 20 MG, UNK (TAKING FOR MONTHS)
     Route: 048
  12. LIXIANA [Concomitant]
     Active Substance: EDOXABAN TOSYLATE
     Indication: PRODUCT USED FOR UNKNOWN INDICATION
     Dosage: 60 MG, QD (TAKING FOR MONTHS)
     Route: 065
  13. ALLOPURINOL. [Concomitant]
     Active Substance: ALLOPURINOL
     Indication: HYPERURICAEMIA
     Dosage: 100 MG, UNK (TAKING FOR YEARS)
     Route: 048
  14. MOVICOL [Concomitant]
     Active Substance: POLYETHYLENE GLYCOL 3350\POTASSIUM CHLORIDE\SODIUM BICARBONATE\SODIUM CHLORIDE
     Indication: PRODUCT USED FOR UNKNOWN INDICATION
     Dosage: 1 DF, QD (INGESTION FOR DAYS)
     Route: 065
  15. NOVALGIN (METAMIZOLE SODIUM) [Concomitant]
     Active Substance: METAMIZOLE SODIUM
     Indication: PRODUCT USED FOR UNKNOWN INDICATION
     Dosage: 2000 MG, QD (INGESTION FOR DAYS)
     Route: 065
  16. ZOLPIDEM [Concomitant]
     Active Substance: ZOLPIDEM\ZOLPIDEM TARTRATE
     Indication: INSOMNIA
     Dosage: 5 MG, UNK (TAKING FOR MONTHS)
     Route: 048
  17. NALOXONE HYDROCHLORIDE W/TILIDINE HYDROCHLORI [Concomitant]
     Active Substance: NALOXONE HYDROCHLORIDE\TILIDINE HYDROCHLORIDE
     Indication: PRODUCT USED FOR UNKNOWN INDICATION
     Dosage: 2 DF, QD (TAKING FOR MONTHS)
     Route: 065
  18. BISOPROLOL [Concomitant]
     Active Substance: BISOPROLOL
     Indication: HYPERTENSION
     Dosage: 5 MG, UNK (TAKING FOR YEARS)
     Route: 048

REACTIONS (1)
  - Hyponatraemia [Recovering/Resolving]

NARRATIVE: CASE EVENT DATE: 20180606
